FAERS Safety Report 26116198 (Version 1)
Quarter: 2025Q4

REPORT INFORMATION
  Report Type: Spontaneous
  Country: US (occurrence: US)
  Receive Date: 20251203
  Receipt Date: 20251203
  Transmission Date: 20260118
  Serious: Yes (Hospitalization, Other)
  Sender: SCIEGEN PHARMACEUTICALS INC
  Company Number: US-SCIEGENP-2025SCLIT00376

PATIENT
  Age: 8 Year
  Sex: Male

DRUGS (2)
  1. ARIPIPRAZOLE [Suspect]
     Active Substance: ARIPIPRAZOLE
     Indication: Abnormal behaviour
     Route: 065
  2. ARIPIPRAZOLE [Suspect]
     Active Substance: ARIPIPRAZOLE
     Indication: Abnormal behaviour
     Route: 065

REACTIONS (5)
  - Priapism [Recovering/Resolving]
  - Accidental exposure to product [Unknown]
  - Dystonia [Recovering/Resolving]
  - Extrapyramidal disorder [Unknown]
  - Product use in unapproved indication [Unknown]
